FAERS Safety Report 4555799-0 (Version None)
Quarter: 2005Q1

REPORT INFORMATION
  Report Type: 
  Country: None (occurrence: None)
  Receive Date: 20050110
  Receipt Date: 20040629
  Transmission Date: 20050727
  Serious: Yes (Death)
  Sender: FDA-Public Use
  Company Number: 04P-163-0265401-00

PATIENT
  Age: 61 Year
  Sex: Female

DRUGS (1)
  1. DILAUDID [Suspect]

REACTIONS (1)
  - DEATH [None]
